FAERS Safety Report 7158574-6 (Version None)
Quarter: 2010Q4

REPORT INFORMATION
  Report Type: 
  Country: None (occurrence: None)
  Receive Date: 20101214
  Receipt Date: 20100524
  Transmission Date: 20110411
  Serious: No
  Sender: FDA-Public Use
  Company Number: US-ASTRAZENECA-2010SE23849

PATIENT
  Age: 14941 Day
  Sex: Male
  Weight: 111.1 kg

DRUGS (1)
  1. CRESTOR [Suspect]
     Dosage: 1 DAILY
     Route: 048
     Dates: start: 20070101

REACTIONS (4)
  - FATIGUE [None]
  - HEADACHE [None]
  - JOINT SWELLING [None]
  - MYALGIA [None]
